FAERS Safety Report 7580428-1 (Version None)
Quarter: 2011Q2

REPORT INFORMATION
  Report Type: 
  Country: None (occurrence: None)
  Receive Date: 20110629
  Receipt Date: 20110609
  Transmission Date: 20111010
  Serious: Yes (Hospitalization)
  Sender: FDA-Public Use
  Company Number: A0772566A

PATIENT
  Age: 54 Year
  Sex: Female
  Weight: 89.1 kg

DRUGS (10)
  1. METOPROLOL TARTRATE [Concomitant]
  2. METFORMIN HCL [Concomitant]
  3. LISINOPRIL [Concomitant]
  4. GLUCOPHAGE [Concomitant]
  5. PLAVIX [Concomitant]
  6. GLUCOTROL [Concomitant]
  7. LIPITOR [Concomitant]
  8. AVANDIA [Suspect]
     Dosage: 4MG PER DAY
     Route: 048
     Dates: start: 20020101, end: 20040817
  9. GLUCOVANCE [Concomitant]
  10. NITROTAB [Concomitant]

REACTIONS (2)
  - ANGINA UNSTABLE [None]
  - MYOCARDIAL INFARCTION [None]
